FAERS Safety Report 18630301 (Version 2)
Quarter: 2021Q1

REPORT INFORMATION
  Report Type: Report from Study
  Country: DE (occurrence: DE)
  Receive Date: 20201217
  Receipt Date: 20210204
  Transmission Date: 20210419
  Serious: Yes (Hospitalization)
  Sender: FDA-Public Use
  Company Number: DE-PFIZER INC-2020491177

PATIENT
  Age: 68 Year
  Sex: Female

DRUGS (14)
  1. AMLODIPINE [Concomitant]
     Active Substance: AMLODIPINE BESYLATE
  2. L?THYROX [Concomitant]
     Active Substance: LEVOTHYROXINE SODIUM
  3. NEUPRO [Concomitant]
     Active Substance: ROTIGOTINE
  4. XELJANZ [Suspect]
     Active Substance: TOFACITINIB CITRATE
     Dosage: 5 MG, 2X/DAY
     Dates: start: 20200429, end: 20200720
  5. IBUPROFEN. [Concomitant]
     Active Substance: IBUPROFEN
  6. FERRO?SANOL DUODENAL [Concomitant]
     Active Substance: FERROUS GLYCINE SULFATE
  7. NO SUBJECT DRUG [Suspect]
     Active Substance: UNSPECIFIED INGREDIENT
     Dosage: NO DOSE GIVEN
  8. CLEXANE [Concomitant]
     Active Substance: ENOXAPARIN SODIUM
  9. PANTOZOLE [Concomitant]
     Active Substance: PANTOPRAZOLE SODIUM
  10. RAMIPRIL. [Concomitant]
     Active Substance: RAMIPRIL
  11. METOPROLOL. [Concomitant]
     Active Substance: METOPROLOL
  12. VENLAFAXINE [Concomitant]
     Active Substance: VENLAFAXINE HYDROCHLORIDE
  13. SILAPO [Concomitant]
  14. PREDNISOLONE. [Concomitant]
     Active Substance: PREDNISOLONE

REACTIONS (1)
  - Bursitis infective staphylococcal [Recovered/Resolved]

NARRATIVE: CASE EVENT DATE: 20200720
